FAERS Safety Report 16099918 (Version 1)
Quarter: 2019Q1

REPORT INFORMATION
  Report Type: Report from Study
  Country: US (occurrence: US)
  Receive Date: 20190321
  Receipt Date: 20190321
  Transmission Date: 20190418
  Serious: Yes (Other)
  Sender: FDA-Public Use
  Company Number: US-MALLINCKRODT-T201902313

PATIENT
  Sex: Male

DRUGS (2)
  1. REPOSITORY CORTICOTROPIN INJECTION [Suspect]
     Active Substance: CORTICOTROPIN
     Indication: CHORIORETINAL DISORDER
     Dosage: UNK, (3 TIMES A WEEK)
     Route: 065
     Dates: start: 2015
  2. REPOSITORY CORTICOTROPIN INJECTION [Suspect]
     Active Substance: CORTICOTROPIN
     Indication: UVEITIS
     Dosage: UNK, (ONCE A WEEK)
     Route: 065

REACTIONS (4)
  - Dysphonia [Recovering/Resolving]
  - Product dose omission [Unknown]
  - Weight decreased [Unknown]
  - Weight increased [Unknown]
